FAERS Safety Report 18346311 (Version 1)
Quarter: 2020Q4

REPORT INFORMATION
  Report Type: Spontaneous
  Country: US (occurrence: US)
  Receive Date: 20201005
  Receipt Date: 20201005
  Transmission Date: 20210114
  Serious: No
  Sender: FDA-Public Use
  Company Number: US-STRONGBRIDGE BIOPHARMA-2020-STR-000249

PATIENT
  Sex: Female

DRUGS (1)
  1. KEVEYIS [Suspect]
     Active Substance: DICHLORPHENAMIDE
     Indication: FAMILIAL PERIODIC PARALYSIS
     Dosage: 25MG TABLET IN THE MORNING AND 50MG TABLET IN THE EVENING
     Route: 048

REACTIONS (4)
  - Wrong technique in product usage process [Unknown]
  - Muscular weakness [Unknown]
  - Muscle spasms [Unknown]
  - Migraine [Unknown]
